FAERS Safety Report 25197107 (Version 2)
Quarter: 2025Q3

REPORT INFORMATION
  Report Type: Report from Study
  Country: CA (occurrence: CA)
  Receive Date: 20250415
  Receipt Date: 20250809
  Transmission Date: 20251020
  Serious: Yes (Hospitalization)
  Sender: ALEXION PHARMACEUTICALS
  Company Number: CA-AstraZeneca-CH-00839320A

PATIENT
  Age: 66 Year
  Sex: Female

DRUGS (3)
  1. CAPIVASERTIB [Suspect]
     Active Substance: CAPIVASERTIB
     Indication: Breast cancer metastatic
     Dosage: 400 MILLIGRAM, BID
     Dates: start: 20250310
  2. FASLODEX [Suspect]
     Active Substance: FULVESTRANT
     Indication: Breast cancer metastatic
     Dosage: 500 MILLIGRAM, Q4W
     Dates: start: 20250310
  3. FASLODEX [Suspect]
     Active Substance: FULVESTRANT

REACTIONS (6)
  - Vomiting [Unknown]
  - Diarrhoea [Unknown]
  - Illness [Unknown]
  - Nausea [Recovering/Resolving]
  - Dysgeusia [Unknown]
  - Urinary tract infection [Unknown]

NARRATIVE: CASE EVENT DATE: 20250402
